FAERS Safety Report 19397662 (Version 2)
Quarter: 2021Q4

REPORT INFORMATION
  Report Type: Report from Study
  Country: KR (occurrence: KR)
  Receive Date: 20210610
  Receipt Date: 20211102
  Transmission Date: 20220303
  Serious: Yes (Other)
  Sender: FDA-Public Use
  Company Number: KR-KYOWAKIRIN-2021AKK009437

PATIENT
  Age: 54 Year
  Sex: Male

DRUGS (39)
  1. FILGRASTIM [Suspect]
     Active Substance: FILGRASTIM
     Indication: Product used for unknown indication
     Dosage: 300 UNK
     Route: 065
     Dates: start: 20110512, end: 20110516
  2. FILGRASTIM [Suspect]
     Active Substance: FILGRASTIM
     Dosage: 300 UNK
     Route: 065
     Dates: start: 20110628, end: 20110705
  3. FILGRASTIM [Suspect]
     Active Substance: FILGRASTIM
     Dosage: 300 UNK
     Route: 065
     Dates: start: 20120502, end: 20120508
  4. FILGRASTIM [Suspect]
     Active Substance: FILGRASTIM
     Dosage: 300 UNK
     Route: 065
     Dates: start: 20120625, end: 20120628
  5. FILGRASTIM [Suspect]
     Active Substance: FILGRASTIM
     Dosage: 300 UNK
     Route: 065
     Dates: start: 20120808, end: 20120808
  6. FILGRASTIM [Suspect]
     Active Substance: FILGRASTIM
     Dosage: 300 UNK
     Route: 065
     Dates: start: 20121004, end: 20121005
  7. FILGRASTIM [Suspect]
     Active Substance: FILGRASTIM
     Dosage: 300 UNK
     Route: 065
     Dates: start: 20121012, end: 20121012
  8. DECITABINE [Concomitant]
     Active Substance: DECITABINE
     Indication: Product used for unknown indication
     Dosage: 20 UNK, QD
     Dates: start: 20110419, end: 20110423
  9. DECITABINE [Concomitant]
     Active Substance: DECITABINE
     Dosage: 20 UNK, QD
     Dates: start: 20110610, end: 20110614
  10. DECITABINE [Concomitant]
     Active Substance: DECITABINE
     Dosage: 20 UNK, QD
     Dates: start: 20110725, end: 20110729
  11. DECITABINE [Concomitant]
     Active Substance: DECITABINE
     Dosage: 20 UNK, QD
     Dates: start: 20110905, end: 20110909
  12. DECITABINE [Concomitant]
     Active Substance: DECITABINE
     Dosage: 20 UNK, QD
     Dates: start: 20111017, end: 20111021
  13. DECITABINE [Concomitant]
     Active Substance: DECITABINE
     Dosage: 20 UNK, QD
     Dates: start: 20111205, end: 20111209
  14. DECITABINE [Concomitant]
     Active Substance: DECITABINE
     Dosage: 20 UNK, QD
     Dates: start: 20120414, end: 20120418
  15. DECITABINE [Concomitant]
     Active Substance: DECITABINE
     Dosage: 20 UNK, QD
     Dates: start: 20120603, end: 20120607
  16. DECITABINE [Concomitant]
     Active Substance: DECITABINE
     Dosage: 20 UNK, QD
     Dates: start: 20120721, end: 20120725
  17. DECITABINE [Concomitant]
     Active Substance: DECITABINE
     Dosage: 20 UNK, QD
     Dates: start: 20120917, end: 20120921
  18. DECITABINE [Concomitant]
     Active Substance: DECITABINE
     Dosage: 20 UNK, QD
     Dates: start: 20121109, end: 20121113
  19. DECITABINE [Concomitant]
     Active Substance: DECITABINE
     Dosage: 20 UNK, QD
     Dates: start: 20121227, end: 20121231
  20. AMOXICILLIN [Concomitant]
     Active Substance: AMOXICILLIN
     Indication: Product used for unknown indication
     Dosage: 375 MILLIGRAM
     Dates: start: 20121221, end: 20121228
  21. CEFDITOREN [Concomitant]
     Active Substance: CEFDITOREN
     Indication: Product used for unknown indication
     Dosage: 300 MILLIGRAM
     Dates: start: 20111114, end: 20111123
  22. CEFDITOREN [Concomitant]
     Active Substance: CEFDITOREN
     Dosage: 300 MILLIGRAM
     Dates: start: 20120208, end: 20120220
  23. CEFEPIME [Concomitant]
     Active Substance: CEFEPIME HYDROCHLORIDE
     Indication: Product used for unknown indication
     Dosage: 1000 MILLIGRAM
     Dates: start: 20130113, end: 20130117
  24. CEFPIROME [Concomitant]
     Active Substance: CEFPIROME
     Indication: Product used for unknown indication
     Dosage: 1 UNK
     Dates: start: 20110812, end: 20110902
  25. CEFPIROME [Concomitant]
     Active Substance: CEFPIROME
     Dosage: 4 UNK
     Dates: start: 20110704, end: 20110707
  26. CEFPIROME [Concomitant]
     Active Substance: CEFPIROME
     Dosage: 4 UNK
     Dates: start: 20110711, end: 20110719
  27. CEFPIROME [Concomitant]
     Active Substance: CEFPIROME
     Dosage: 10 MG
     Dates: start: 20110512, end: 20110530
  28. CIPROFLOXACIN [Concomitant]
     Active Substance: CIPROFLOXACIN
     Indication: Product used for unknown indication
     Dosage: 500 MILLIGRAM
     Dates: start: 20120220, end: 20120226
  29. ITRACONAZOLE [Concomitant]
     Active Substance: ITRACONAZOLE
     Indication: Product used for unknown indication
     Dosage: 40 UNK
     Dates: start: 20110823, end: 20110829
  30. ITRACONAZOLE [Concomitant]
     Active Substance: ITRACONAZOLE
     Dosage: 40 UNK
     Dates: start: 20110928, end: 20110930
  31. LENOGRASTIM [Concomitant]
     Active Substance: LENOGRASTIM
     Indication: Product used for unknown indication
     Dosage: 250 UNK
     Dates: start: 20110425, end: 20110511
  32. LENOGRASTIM [Concomitant]
     Active Substance: LENOGRASTIM
     Dosage: 250 UNK
     Dates: start: 20110926, end: 20110930
  33. LENOGRASTIM [Concomitant]
     Active Substance: LENOGRASTIM
     Dosage: 250 UNK
     Dates: start: 20111107, end: 20111107
  34. LENOGRASTIM [Concomitant]
     Active Substance: LENOGRASTIM
     Dosage: 250 UNK
     Dates: start: 20111109, end: 20111109
  35. LENOGRASTIM [Concomitant]
     Active Substance: LENOGRASTIM
     Dosage: 250 UNK
     Dates: start: 20111228, end: 20111228
  36. LENOGRASTIM [Concomitant]
     Active Substance: LENOGRASTIM
     Dosage: 250 UNK
     Dates: start: 20111230, end: 20111230
  37. LEVOFLOXACIN [Concomitant]
     Active Substance: LEVOFLOXACIN
     Indication: Product used for unknown indication
     Dosage: 250 MILLIGRAM
     Dates: start: 20110926, end: 20111001
  38. LOSARTAN [Concomitant]
     Active Substance: LOSARTAN
     Indication: Product used for unknown indication
     Dosage: 1 DOSAGE FORM
  39. NIFEDIPINE [Concomitant]
     Active Substance: NIFEDIPINE
     Indication: Product used for unknown indication
     Dosage: 2 DOSAGE FORM

REACTIONS (6)
  - Ileus [Recovered/Resolved]
  - Pneumonia [Recovered/Resolved]
  - Hypoaesthesia [Recovered/Resolved]
  - Abdominal discomfort [Recovered/Resolved]
  - Nasopharyngitis [Recovered/Resolved]
  - Pyrexia [Not Recovered/Not Resolved]

NARRATIVE: CASE EVENT DATE: 20110427
